FAERS Safety Report 10061291 (Version 1)
Quarter: 2014Q2

REPORT INFORMATION
  Report Type: Spontaneous
  Country: US (occurrence: US)
  Receive Date: 20140407
  Receipt Date: 20140407
  Transmission Date: 20141212
  Serious: Yes (Other)
  Sender: FDA-Public Use
  Company Number: US-ROCHE-1376225

PATIENT
  Age: 65 Year
  Sex: Female

DRUGS (3)
  1. PEGASYS [Suspect]
     Indication: CHRONIC HEPATITIS C
     Dosage: ONGOING
     Route: 058
     Dates: start: 20140317
  2. RIBAVIRIN [Suspect]
     Indication: CHRONIC HEPATITIS C
     Route: 048
     Dates: start: 20140317
  3. SOVALDI [Suspect]
     Indication: CHRONIC HEPATITIS C
     Dosage: ONGOING
     Route: 048
     Dates: start: 20140317

REACTIONS (2)
  - Hyperbilirubinaemia [Not Recovered/Not Resolved]
  - Jaundice [Recovering/Resolving]
